FAERS Safety Report 4819894-0 (Version None)
Quarter: 2005Q4

REPORT INFORMATION
  Report Type: 
  Country: None (occurrence: None)
  Receive Date: 20051103
  Receipt Date: 20050719
  Transmission Date: 20060501
  Serious: Yes (Hospitalization)
  Sender: FDA-Public Use
  Company Number: US-MERCK-0507USA03130

PATIENT
  Age: 66 Year
  Sex: Female
  Weight: 88 kg

DRUGS (8)
  1. VIOXX [Suspect]
     Indication: ARTHRALGIA
     Route: 048
     Dates: start: 20010622, end: 20021101
  2. BUSPAR [Concomitant]
     Indication: ANXIETY
     Route: 065
  3. ELAVIL [Concomitant]
     Indication: RESTLESS LEGS SYNDROME
     Route: 065
  4. GLYBURIDE [Concomitant]
     Indication: DIABETES MELLITUS
     Route: 065
  5. NAPROXEN [Concomitant]
     Indication: ARTHRITIS
     Route: 065
     Dates: start: 19990201, end: 20010701
  6. PREMARIN [Concomitant]
     Indication: HORMONE REPLACEMENT THERAPY
     Route: 065
     Dates: start: 19990113
  7. HYDROCHLOROTHIAZIDE AND TRIAMTERENE [Concomitant]
     Indication: HYPERTENSION
     Route: 065
     Dates: start: 20000804
  8. HYDROCHLOROTHIAZIDE AND TRIAMTERENE [Concomitant]
     Indication: OEDEMA
     Route: 065
     Dates: start: 20000804

REACTIONS (14)
  - ACUTE MYOCARDIAL INFARCTION [None]
  - ANGINA PECTORIS [None]
  - BACTERIAL INFECTION [None]
  - BLOOD CHOLESTEROL INCREASED [None]
  - BLOOD TRIGLYCERIDES INCREASED [None]
  - CARDIAC FAILURE CONGESTIVE [None]
  - CATARACT [None]
  - CORONARY ARTERY DISEASE [None]
  - EYE INFECTION [None]
  - EYE IRRITATION [None]
  - HYPERTONIC BLADDER [None]
  - INCONTINENCE [None]
  - OEDEMA PERIPHERAL [None]
  - SINUSITIS [None]
